FAERS Safety Report 12163034 (Version 1)
Quarter: 2016Q1

REPORT INFORMATION
  Report Type: Spontaneous
  Country: US (occurrence: US)
  Receive Date: 20160309
  Receipt Date: 20160309
  Transmission Date: 20160526
  Serious: Yes (Other)
  Sender: FDA-Public Use
  Company Number: US-ROCHE-1521673

PATIENT
  Age: 58 Year
  Sex: Female

DRUGS (1)
  1. XOLAIR [Suspect]
     Active Substance: OMALIZUMAB
     Indication: PRODUCT USED FOR UNKNOWN INDICATION
     Dosage: 1.2 X 2 WEEKS
     Route: 065
     Dates: start: 20050105

REACTIONS (8)
  - Aortic valve sclerosis [Unknown]
  - Pulmonary valve incompetence [Unknown]
  - Breast calcifications [Unknown]
  - Mitral valve disease [Unknown]
  - Aortic valve incompetence [Unknown]
  - Mitral valve incompetence [Unknown]
  - Precancerous cells present [Unknown]
  - Extrasystoles [Unknown]

NARRATIVE: CASE EVENT DATE: 201305
